FAERS Safety Report 9779454 (Version 2)
Quarter: 2014Q1

REPORT INFORMATION
  Report Type: Spontaneous
  Country: US (occurrence: US)
  Receive Date: 20131223
  Receipt Date: 20140205
  Transmission Date: 20141002
  Serious: Yes (Other)
  Sender: FDA-Public Use
  Company Number: US-PFIZER INC-2013364353

PATIENT
  Age: 67 Year
  Sex: Male

DRUGS (3)
  1. CELEBREX [Suspect]
     Indication: ARTHRALGIA
     Dosage: 2 OF THE 200MG, SINGLE
     Route: 048
     Dates: start: 20131030, end: 20131030
  2. HYZAAR [Concomitant]
     Dosage: HYDROCHLOROTHIAZIDE 25/ LOSARTAN POTASSIUM 100
  3. CRESTOR [Concomitant]
     Dosage: 10 MG, DAILY

REACTIONS (9)
  - Osteoarthritis [Unknown]
  - Hypersensitivity [Recovered/Resolved]
  - Throat tightness [Recovered/Resolved]
  - Pharyngeal disorder [Recovered/Resolved]
  - Dysphagia [Recovered/Resolved]
  - Tongue pruritus [Recovered/Resolved]
  - Oral pruritus [Recovered/Resolved]
  - Pruritus [Recovered/Resolved]
  - Drug ineffective for unapproved indication [Unknown]
